FAERS Safety Report 9804678 (Version 1)
Quarter: 2014Q1

REPORT INFORMATION
  Report Type: Report from Study
  Country: US (occurrence: US)
  Receive Date: 20140108
  Receipt Date: 20140108
  Transmission Date: 20141002
  Serious: Yes (Hospitalization, Other)
  Sender: FDA-Public Use
  Company Number: US-US-EMD SERONO, INC.-7261042

PATIENT
  Sex: Male

DRUGS (4)
  1. REBIF [Suspect]
     Indication: MULTIPLE SCLEROSIS
     Route: 058
  2. REBIF [Suspect]
     Route: 058
     Dates: start: 20100414
  3. BABY ASPIRIN [Concomitant]
     Indication: PRODUCT USED FOR UNKNOWN INDICATION
  4. VITAMIN C                          /00008001/ [Concomitant]
     Indication: PRODUCT USED FOR UNKNOWN INDICATION

REACTIONS (8)
  - Atypical pneumonia [Recovered/Resolved]
  - Viral infection [Unknown]
  - Vomiting [Unknown]
  - Renal failure [Recovered/Resolved]
  - Dehydration [Unknown]
  - Hypotension [Recovered/Resolved]
  - Platelet count decreased [Recovered/Resolved]
  - Cardiac enzymes increased [Unknown]
